FAERS Safety Report 6163729-3 (Version None)
Quarter: 2009Q2

REPORT INFORMATION
  Report Type: 
  Country: None (occurrence: None)
  Receive Date: 20090420
  Receipt Date: 20090420
  Transmission Date: 20091009
  Serious: Yes (Death)
  Sender: FDA-Public Use
  Company Number: None

PATIENT
  Age: 63 Year
  Sex: Male
  Weight: 81.1939 kg

DRUGS (1)
  1. HEPARIN [Suspect]
     Indication: SURGERY

REACTIONS (1)
  - RESPIRATORY FAILURE [None]
